FAERS Safety Report 5480681-4 (Version None)
Quarter: 2007Q4

REPORT INFORMATION
  Report Type: 
  Country: None (occurrence: None)
  Receive Date: 20071009
  Receipt Date: 20071001
  Transmission Date: 20080405
  Serious: Yes (Hospitalization, Other)
  Sender: FDA-Public Use
  Company Number: TR-AVENTIS-200719156GDDC

PATIENT
  Age: 52 Year
  Sex: Female

DRUGS (7)
  1. LANTUS [Suspect]
     Route: 058
     Dates: start: 20070424
  2. AUTOPEN 24 [Suspect]
     Route: 058
  3. HUMULINE                           /00806401/ [Suspect]
     Route: 058
     Dates: start: 20070424
  4. ATARAX                             /00058402/ [Concomitant]
     Route: 048
     Dates: start: 20070927
  5. TAVEGYL [Concomitant]
     Route: 048
     Dates: start: 20070927
  6. AVIL [Concomitant]
     Route: 048
     Dates: start: 20070927
  7. NERISONA C [Concomitant]
     Route: 061
     Dates: start: 20070927

REACTIONS (2)
  - HYPOGLYCAEMIC UNCONSCIOUSNESS [None]
  - SYNCOPE [None]
